FAERS Safety Report 12375045 (Version 1)
Quarter: 2016Q2

REPORT INFORMATION
  Report Type: Spontaneous
  Country: US (occurrence: None)
  Receive Date: 20160516
  Receipt Date: 20160516
  Transmission Date: 20160815
  Serious: No
  Sender: FDA-Public Use
  Company Number: None

PATIENT
  Age: 28 Year
  Sex: Female
  Weight: 48.54 kg

DRUGS (5)
  1. COPAXONE [Concomitant]
     Active Substance: GLATIRAMER ACETATE
  2. COPAXONE [Suspect]
     Active Substance: GLATIRAMER ACETATE
     Indication: MULTIPLE SCLEROSIS
     Dosage: 1 INJECTION(S) 3X WEEK GIVEN INTO/UNDER THE SKIN
     Route: 058
     Dates: start: 20160208, end: 20160513
  3. ZYRTEC [Concomitant]
     Active Substance: CETIRIZINE HYDROCHLORIDE
  4. VITAMIN D [Concomitant]
     Active Substance: CHOLECALCIFEROL
  5. PROVIGIL [Concomitant]
     Active Substance: MODAFINIL

REACTIONS (10)
  - Dizziness [None]
  - Depressed level of consciousness [None]
  - Asthenia [None]
  - Tremor [None]
  - Feeling abnormal [None]
  - Hangover [None]
  - Injection site mass [None]
  - Tinnitus [None]
  - Injection site haemorrhage [None]
  - Fall [None]

NARRATIVE: CASE EVENT DATE: 20160513
